FAERS Safety Report 20064001 (Version 3)
Quarter: 2025Q2

REPORT INFORMATION
  Report Type: Report from Study
  Country: KR (occurrence: KR)
  Receive Date: 20211112
  Receipt Date: 20250430
  Transmission Date: 20250716
  Serious: Yes (Death, Other)
  Sender: NOVARTIS
  Company Number: KR-NOVARTISPH-NVSC2021KR200053

PATIENT
  Age: 74 Year
  Sex: Female

DRUGS (41)
  1. KISQALI [Suspect]
     Active Substance: RIBOCICLIB SUCCINATE
     Indication: Hormone receptor positive HER2 negative breast cancer
     Dosage: 600 MG, QD
     Route: 048
     Dates: start: 20210615, end: 20210630
  2. KISQALI [Suspect]
     Active Substance: RIBOCICLIB SUCCINATE
     Dosage: 600 MG, QD
     Route: 048
     Dates: start: 20210713, end: 20210728
  3. PROPACETAMOL HYDROCHLORIDE [Concomitant]
     Active Substance: PROPACETAMOL HYDROCHLORIDE
     Indication: Pyrexia
     Dosage: 1 G, QD
     Route: 042
     Dates: start: 20210615, end: 20210621
  4. Tazoperan [Concomitant]
     Indication: Urinary tract infection
     Dosage: 13.5 G, QD
     Route: 042
     Dates: start: 20210614, end: 20210617
  5. Tazoperan [Concomitant]
     Dosage: 4.5 G, QD
     Route: 042
     Dates: start: 20210730
  6. ACETYLCYSTEINE [Concomitant]
     Active Substance: ACETYLCYSTEINE
     Indication: Prophylaxis
     Dosage: 400 MG, QD
     Route: 048
     Dates: start: 20210614, end: 20210620
  7. Cacepin [Concomitant]
     Indication: Insomnia
     Dosage: 12.5 MG, QD
     Route: 048
     Dates: start: 20210616, end: 20210620
  8. LACTULOSE [Concomitant]
     Active Substance: LACTULOSE
     Indication: Constipation
     Dosage: 30 ML, QD
     Route: 048
     Dates: start: 20210619, end: 20210619
  9. Ferrous sulfate exsiccated [Concomitant]
     Indication: Anaemia
     Dosage: 2 DF, QD
     Route: 048
     Dates: start: 20210609, end: 20210620
  10. Trestan [Concomitant]
     Indication: Decreased appetite
     Dosage: 2 DF, QD
     Route: 048
     Dates: start: 20210607, end: 20210621
  11. LYRICA [Concomitant]
     Active Substance: PREGABALIN
     Indication: Bone pain
     Dosage: 50 MG, QD
     Route: 048
     Dates: start: 20210607, end: 20210616
  12. FEMARA [Concomitant]
     Active Substance: LETROZOLE
     Indication: Breast cancer
     Dosage: 2.5 MG, QD
     Route: 048
     Dates: start: 20210615, end: 20210728
  13. LINAGLIPTIN [Concomitant]
     Active Substance: LINAGLIPTIN
     Indication: Diabetes mellitus
     Dosage: 5 MG, QD
     Route: 048
     Dates: start: 20210605, end: 20210628
  14. AMLODIPINE CAMSYLATE [Concomitant]
     Active Substance: AMLODIPINE CAMSYLATE
     Indication: Hypertension
     Dosage: 5 MG, QD
     Route: 048
     Dates: start: 20210605, end: 20210621
  15. LIPITOR [Concomitant]
     Active Substance: ATORVASTATIN CALCIUM
     Indication: Prophylaxis
     Dosage: 10 MG, QD
     Route: 048
     Dates: start: 20210605, end: 20210616
  16. Phosten [Concomitant]
     Indication: Prophylaxis
     Dosage: 20 MG, QD
     Route: 042
     Dates: start: 20210615, end: 20210615
  17. Phosten [Concomitant]
     Dosage: 20 MG, QD
     Route: 042
     Dates: start: 20210617, end: 20210617
  18. LASIX [Concomitant]
     Active Substance: FUROSEMIDE
     Indication: Prophylaxis
     Dosage: 20 MG, QD
     Route: 042
     Dates: start: 20210609, end: 20210618
  19. IRON ISOMALTOSIDE 1000 [Concomitant]
     Active Substance: IRON ISOMALTOSIDE 1000
     Indication: Prophylaxis
     Dosage: 2 AMP, QD
     Route: 042
     Dates: start: 20210713, end: 20210713
  20. CADUET [Concomitant]
     Active Substance: AMLODIPINE BESYLATE\ATORVASTATIN CALCIUM
     Indication: Hypertension
     Dosage: 1 DF, QD
     Route: 048
     Dates: start: 20210621
  21. CADUET [Concomitant]
     Active Substance: AMLODIPINE BESYLATE\ATORVASTATIN CALCIUM
     Dosage: UNK UNK, QD, (5/10 MG/DAY)
     Route: 048
     Dates: start: 20210701
  22. ESOMEPRAZOLE SODIUM [Concomitant]
     Active Substance: ESOMEPRAZOLE SODIUM
     Indication: Prophylaxis
     Dosage: 160 MG, QD
     Route: 042
     Dates: start: 20210728
  23. FUROSEMIDE [Concomitant]
     Active Substance: FUROSEMIDE
     Indication: Prophylaxis
     Dosage: 730 MG, QD
     Route: 042
     Dates: start: 20210728
  24. AMINO ACIDS\DEXTROSE\ELECTROLYTES NOS\SOYBEAN OIL [Concomitant]
     Active Substance: AMINO ACIDS\DEXTROSE\ELECTROLYTES NOS\SOYBEAN OIL
     Indication: Prophylaxis
     Dosage: 1206 ML, QD
     Route: 042
     Dates: start: 20210726
  25. Norpin [Concomitant]
     Indication: Prophylaxis
     Dosage: 32 MG, QD
     Route: 042
     Dates: start: 20210730
  26. ALBUMIN HUMAN [Concomitant]
     Active Substance: ALBUMIN HUMAN
     Indication: Prophylaxis
     Dosage: 500 ML, QD
     Route: 042
     Dates: start: 20210730
  27. METHYLPREDNISOLONE SODIUM SUCCINATE [Concomitant]
     Active Substance: METHYLPREDNISOLONE SODIUM SUCCINATE
     Indication: Prophylaxis
     Dosage: 30 MG, QD
     Route: 042
     Dates: start: 20210730
  28. CEFTRIAXONE [Concomitant]
     Active Substance: CEFTRIAXONE
     Indication: Prophylaxis
     Dosage: 2 G, QD
     Route: 042
     Dates: start: 20210730
  29. TRANEXAMIC ACID [Concomitant]
     Active Substance: TRANEXAMIC ACID
     Indication: Prophylaxis
     Dosage: 1000 MG, QD
     Route: 042
     Dates: start: 20210730
  30. CHLORPHENIRAMINE MALEATE [Concomitant]
     Active Substance: CHLORPHENIRAMINE MALEATE
     Indication: Prophylaxis
     Dosage: 8 MG, QD
     Route: 042
     Dates: start: 20210730
  31. ACETYLCYSTEINE [Concomitant]
     Active Substance: ACETYLCYSTEINE
     Indication: Prophylaxis
     Dosage: 600 MG, QD
     Route: 042
     Dates: start: 20210730
  32. INSULIN GLULISINE [Concomitant]
     Active Substance: INSULIN GLULISINE
     Indication: Hyperglycaemia
     Dosage: 8 IU, QD
     Route: 058
     Dates: start: 20210728, end: 20210728
  33. INSULIN GLULISINE [Concomitant]
     Active Substance: INSULIN GLULISINE
     Dosage: 12 IU, QD
     Route: 058
     Dates: start: 20210730
  34. EVOGLIPTIN TARTRATE [Concomitant]
     Active Substance: EVOGLIPTIN TARTRATE
     Indication: Diabetes mellitus
     Dosage: 5 MG, QD
     Route: 048
     Dates: start: 20210701
  35. ORNITHINE ASPARTATE [Concomitant]
     Active Substance: ORNITHINE ASPARTATE
     Indication: Prophylaxis
     Dosage: 2000 MG, QD
     Route: 042
     Dates: start: 20210730
  36. IPRATROPIUM BROMIDE [Concomitant]
     Active Substance: IPRATROPIUM BROMIDE
     Indication: Prophylaxis
     Dosage: 1000 MCG/ML, QD, GARGLE
     Route: 002
     Dates: start: 20210728
  37. INSULIN GLARGINE [Concomitant]
     Active Substance: INSULIN GLARGINE
     Indication: Hyperglycaemia
     Dosage: 16 IU, QD
     Route: 058
     Dates: start: 20210728
  38. FREAMINE III NOS [Concomitant]
     Active Substance: AMINO ACIDS
     Indication: Asthenia
     Dosage: 500 ML, QD
     Route: 042
     Dates: start: 20210728
  39. INSULIN HUMAN [Concomitant]
     Active Substance: INSULIN HUMAN
     Indication: Hyperglycaemia
     Dosage: 100 IU, QD
     Route: 042
     Dates: start: 20210728
  40. HERBALS [Concomitant]
     Active Substance: HERBALS
     Indication: Prophylaxis
     Dosage: 3 DOSAGE FORM, QD
     Route: 048
     Dates: start: 20210705, end: 20210721
  41. EVOGLIPTIN TARTRATE [Concomitant]
     Active Substance: EVOGLIPTIN TARTRATE
     Indication: Prophylaxis
     Dosage: 5 MG, QD
     Route: 048
     Dates: start: 20210701

REACTIONS (2)
  - Thrombocytopenia [Fatal]
  - Thrombocytopenia [Recovered/Resolved]

NARRATIVE: CASE EVENT DATE: 20210701
